FAERS Safety Report 4745578-3 (Version None)
Quarter: 2005Q3

REPORT INFORMATION
  Report Type: 
  Country: None (occurrence: None)
  Receive Date: 20050815
  Receipt Date: 20050802
  Transmission Date: 20060218
  Serious: No
  Sender: FDA-Public Use
  Company Number: 05H-163-0301934-00

PATIENT

DRUGS (1)
  1. HEPARIN SODIUM [Suspect]
     Dosage: INTRAVENOUS
     Route: 042
     Dates: start: 20050701

REACTIONS (2)
  - CYANOSIS [None]
  - DYSPNOEA [None]
